FAERS Safety Report 24677055 (Version 1)
Quarter: 2024Q4

REPORT INFORMATION
  Report Type: Spontaneous
  Country: US (occurrence: US)
  Receive Date: 20241129
  Receipt Date: 20241129
  Transmission Date: 20250114
  Serious: No
  Sender: BRISTOL-MYERS SQUIBB COMPANY
  Company Number: US-BRISTOL-MYERS SQUIBB COMPANY-2024-186519

PATIENT
  Age: 85 Year
  Sex: Female

DRUGS (1)
  1. LENALIDOMIDE [Suspect]
     Active Substance: LENALIDOMIDE
     Indication: Follicular lymphoma
     Dosage: FREQUENCY : 21
     Dates: start: 20241028

REACTIONS (5)
  - Drug intolerance [Unknown]
  - Fatigue [Unknown]
  - Asthenia [Unknown]
  - Insurance issue [Unknown]
  - Therapy interrupted [Unknown]
